FAERS Safety Report 21619342 (Version 1)
Quarter: 2022Q4

REPORT INFORMATION
  Report Type: Spontaneous
  Country: US (occurrence: US)
  Receive Date: 20221120
  Receipt Date: 20221120
  Transmission Date: 20230112
  Serious: Yes (Hospitalization)
  Sender: FDA-Public Use
  Company Number: US-BIOGEN-2022BI01169189

PATIENT
  Sex: Male

DRUGS (1)
  1. TYSABRI [Suspect]
     Active Substance: NATALIZUMAB
     Indication: Multiple sclerosis
     Route: 050
     Dates: start: 20210913, end: 20220411

REACTIONS (5)
  - Cerebrovascular accident [Unknown]
  - Seizure [Unknown]
  - Myocardial infarction [Unknown]
  - Thrombosis [Unknown]
  - Multiple sclerosis [Unknown]
